FAERS Safety Report 8456459-6 (Version None)
Quarter: 2012Q2

REPORT INFORMATION
  Report Type: 
  Country: None (occurrence: None)
  Receive Date: 20120621
  Receipt Date: 20120612
  Transmission Date: 20120825
  Serious: Yes (Hospitalization, Other)
  Sender: FDA-Public Use
  Company Number: JP-ROCHE-1079016

PATIENT
  Sex: Female

DRUGS (23)
  1. ACTEMRA [Suspect]
     Route: 041
     Dates: start: 20090610, end: 20090610
  2. ACTEMRA [Suspect]
     Route: 041
     Dates: start: 20090708, end: 20090708
  3. ACTEMRA [Suspect]
     Route: 041
     Dates: start: 20090805, end: 20090805
  4. PREDNISOLONE [Concomitant]
     Indication: RHEUMATOID ARTHRITIS
     Route: 048
  5. AMARYL [Concomitant]
     Indication: RHEUMATOID ARTHRITIS
     Route: 048
  6. ISOSORBIDE MONONITRATE [Concomitant]
     Indication: RHEUMATOID ARTHRITIS
     Route: 048
  7. ACTEMRA [Suspect]
     Indication: RHEUMATOID ARTHRITIS
     Route: 041
     Dates: start: 20080925, end: 20080925
  8. ACTEMRA [Suspect]
     Route: 041
     Dates: start: 20090415, end: 20090415
  9. ACTEMRA [Suspect]
     Route: 041
     Dates: start: 20090513, end: 20090513
  10. ACTEMRA [Suspect]
     Route: 041
     Dates: start: 20090920, end: 20090920
  11. KENTAN [Concomitant]
     Indication: RHEUMATOID ARTHRITIS
     Route: 048
  12. ACETAMINOPHEN [Concomitant]
     Indication: RHEUMATOID ARTHRITIS
     Route: 048
  13. LASIX [Concomitant]
     Indication: RHEUMATOID ARTHRITIS
     Route: 048
  14. ACTEMRA [Suspect]
     Route: 041
     Dates: start: 20081217, end: 20081217
  15. ALFACALCIDOL [Concomitant]
     Indication: RHEUMATOID ARTHRITIS
     Route: 048
  16. ACTEMRA [Suspect]
     Route: 041
     Dates: start: 20081023, end: 20081023
  17. ACTEMRA [Suspect]
     Route: 041
     Dates: start: 20090115, end: 20090115
  18. ACTEMRA [Suspect]
     Route: 041
     Dates: start: 20090212, end: 20090212
  19. ACTEMRA [Suspect]
     Route: 041
     Dates: start: 20090902, end: 20090902
  20. ACTEMRA [Suspect]
     Route: 041
     Dates: start: 20081120, end: 20081120
  21. ACTEMRA [Suspect]
     Route: 041
     Dates: start: 20090318, end: 20090318
  22. OMEPRAZOLE [Concomitant]
     Indication: RHEUMATOID ARTHRITIS
     Route: 048
  23. EURAX [Concomitant]
     Indication: RHEUMATOID ARTHRITIS
     Route: 003

REACTIONS (3)
  - JOINT DISLOCATION [None]
  - MYOCARDIAL INFARCTION [None]
  - ANGINA PECTORIS [None]
